FAERS Safety Report 6879645-5 (Version None)
Quarter: 2010Q3

REPORT INFORMATION
  Report Type: 
  Country: None (occurrence: None)
  Receive Date: 20100728
  Receipt Date: 20091109
  Transmission Date: 20110219
  Serious: No
  Sender: FDA-Public Use
  Company Number: US-MYLANLABS-2009S1018624

PATIENT
  Age: 80 Year
  Sex: Female

DRUGS (6)
  1. CLONIDINE HYDROCHLORIDE [Suspect]
     Indication: BLOOD PRESSURE INCREASED
     Dosage: TAKES 1 TABLET FOR A SYSTOLIC BP 140 OR UNDER
     Route: 048
     Dates: start: 20061001
  2. CLONIDINE HYDROCHLORIDE [Suspect]
     Dosage: TAKES 2 TABLETS FOR A SYSTOLIC BLOOD PRESSURE 140 OR OVER
     Route: 048
     Dates: start: 20061001
  3. PLAVIX [Concomitant]
  4. DIOVAN [Concomitant]
  5. COREG [Concomitant]
  6. HYDROCHLOROTHIAZIDE [Concomitant]

REACTIONS (3)
  - BLOOD PRESSURE INCREASED [None]
  - DRUG INEFFECTIVE [None]
  - MALAISE [None]
